FAERS Safety Report 10205575 (Version 2)
Quarter: 2014Q2

REPORT INFORMATION
  Report Type: Spontaneous
  Country: US (occurrence: US)
  Receive Date: 20140529
  Receipt Date: 20140630
  Transmission Date: 20141212
  Serious: Yes (Hospitalization)
  Sender: FDA-Public Use
  Company Number: US-FRI-1000067576

PATIENT
  Age: 63 Year
  Sex: Female
  Weight: 72.12 kg

DRUGS (17)
  1. SAVELLA [Suspect]
     Dosage: 100MG
     Route: 048
     Dates: end: 20140428
  2. SAVELLA [Suspect]
     Dosage: 25MG
     Route: 048
     Dates: start: 2014
  3. AMBIEN [Suspect]
     Dosage: 10MG
     Dates: end: 20140428
  4. ALCOHOL [Suspect]
  5. SOMA [Concomitant]
     Dosage: EVERY SIX HOURS AS NEEDED
  6. VICODIN [Concomitant]
     Dosage: 10/325MG AS NEEDED
  7. NORFLEX [Concomitant]
     Dosage: 200MG
  8. METFORMIN [Concomitant]
     Dosage: 2000MG
  9. DOXEPIN [Concomitant]
     Dosage: 10MG TWICE DAILY AS NEEDED
  10. NEXIUM [Concomitant]
     Dosage: 40MG
  11. TRIAMCINOLONE [Concomitant]
     Dosage: AS NEEDED
  12. ASPIRIN [Concomitant]
     Dosage: 81MG
  13. PRAVACHOL [Concomitant]
     Dosage: 40MG
  14. CLONAZEPAM [Concomitant]
     Dosage: 2MG
  15. NEURONTIN [Concomitant]
     Dosage: 300MG
  16. LISINOPRIL [Concomitant]
     Dosage: 10MG
  17. LORAZEPAM [Concomitant]
     Dosage: 2MG AS NEEDED

REACTIONS (2)
  - Suicide attempt [Recovered/Resolved]
  - Intentional overdose [Recovered/Resolved]
